FAERS Safety Report 17501796 (Version 1)
Quarter: 2020Q1

REPORT INFORMATION
  Report Type: Spontaneous
  Country: US (occurrence: US)
  Receive Date: 20200305
  Receipt Date: 20200305
  Transmission Date: 20200409
  Serious: No
  Sender: FDA-Public Use
  Company Number: US-PFIZER INC-2020098704

PATIENT
  Age: 40 Year
  Sex: Female

DRUGS (2)
  1. IBRANCE [Suspect]
     Active Substance: PALBOCICLIB
     Dosage: 125 MG, CYCLIC (TAKE ONE CAPSULE BY MOUTH ONCE DAILY FOR 21 DAYS ON, THEN 7 DAYS OFF)
     Route: 048
     Dates: start: 20200213
  2. LETROZOLE. [Suspect]
     Active Substance: LETROZOLE
     Dosage: UNK
     Dates: start: 20200213

REACTIONS (4)
  - Hot flush [Unknown]
  - Arthralgia [Unknown]
  - Night sweats [Unknown]
  - Fatigue [Unknown]

NARRATIVE: CASE EVENT DATE: 2020
